FAERS Safety Report 7363525 (Version 2)
Quarter: 2013Q1

REPORT INFORMATION
  Report Type: Report from Study
  Country: US (occurrence: US)
  Receive Date: 20100422
  Receipt Date: 20130116
  Transmission Date: 20140127
  Serious: Yes (Other)
  Sender: FDA-Public Use
  Company Number: US-RB-005138-10

PATIENT
  Age: 33 Year
  Sex: Female

DRUGS (2)
  1. SUBOXONE [Suspect]
     Indication: DRUG DEPENDENCE
     Route: 060
     Dates: start: 20090724, end: 201002
  2. SUBUTEX [Suspect]
     Indication: DRUG DEPENDENCE
     Route: 060
     Dates: start: 201002

REACTIONS (3)
  - Abortion spontaneous [Recovered/Resolved]
  - Foetal heart rate abnormal [Recovered/Resolved]
  - Exposure during pregnancy [Recovered/Resolved]
